FAERS Safety Report 25911559 (Version 2)
Quarter: 2025Q4

REPORT INFORMATION
  Report Type: Spontaneous
  Country: US (occurrence: US)
  Receive Date: 20251013
  Receipt Date: 20251023
  Transmission Date: 20260117
  Serious: No
  Sender: SANOFI AVENTIS
  Company Number: US-SA-2025SA297952

PATIENT
  Age: 51 Year
  Sex: Male

DRUGS (4)
  1. ALPROLIX [Suspect]
     Active Substance: EFTRENONACOG ALFA
     Indication: Factor IX deficiency
     Dosage: 3000 IU, QW
     Route: 042
     Dates: start: 201208
  2. ALPROLIX [Suspect]
     Active Substance: EFTRENONACOG ALFA
     Indication: Factor IX deficiency
     Dosage: 3000 IU, QW
     Route: 042
     Dates: start: 201208
  3. ALPROLIX [Suspect]
     Active Substance: EFTRENONACOG ALFA
     Dosage: 4000 IU, QW
     Route: 042
     Dates: start: 201208
  4. ALPROLIX [Suspect]
     Active Substance: EFTRENONACOG ALFA
     Dosage: 4000 IU, QW
     Route: 042
     Dates: start: 201208

REACTIONS (2)
  - Haemorrhage [Not Recovered/Not Resolved]
  - Bone contusion [Unknown]

NARRATIVE: CASE EVENT DATE: 20250925
